FAERS Safety Report 15837159 (Version 3)
Quarter: 2019Q1

REPORT INFORMATION
  Report Type: Report from Study
  Country: US (occurrence: US)
  Receive Date: 20190117
  Receipt Date: 20190222
  Transmission Date: 20190417
  Serious: Yes (Other)
  Sender: FDA-Public Use
  Company Number: US-TEVA-2019-US-997763

PATIENT
  Age: 53 Year
  Sex: Female

DRUGS (10)
  1. BUSPIRONE [Concomitant]
     Active Substance: BUSPIRONE HYDROCHLORIDE
  2. HYDROXYZINE [Concomitant]
     Active Substance: HYDROXYZINE HYDROCHLORIDE
  3. NALTREXONE [Concomitant]
     Active Substance: NALTREXONE
  4. NEURONTIN [Concomitant]
     Active Substance: GABAPENTIN
  5. VITAMIN E [Concomitant]
     Active Substance: .ALPHA.-TOCOPHEROL
  6. CLOZAPINE TEVA [Suspect]
     Active Substance: CLOZAPINE
     Route: 048
  7. FERROUS SULFATE. [Concomitant]
     Active Substance: FERROUS SULFATE
  8. LAMOTRIGINE. [Concomitant]
     Active Substance: LAMOTRIGINE
  9. K-DUR [Concomitant]
     Active Substance: POTASSIUM CHLORIDE
  10. MIRTAZAPIN [Concomitant]
     Active Substance: MIRTAZAPINE

REACTIONS (1)
  - Granulocytopenia [Recovered/Resolved]

NARRATIVE: CASE EVENT DATE: 20190108
